FAERS Safety Report 20662366 (Version 1)
Quarter: 2022Q2

REPORT INFORMATION
  Report Type: Spontaneous
  Country: IT (occurrence: IT)
  Receive Date: 20220401
  Receipt Date: 20220401
  Transmission Date: 20220720
  Serious: Yes (Other)
  Sender: FDA-Public Use
  Company Number: IT-LUPIN PHARMACEUTICALS INC.-2022-04414

PATIENT
  Age: 67 Year
  Sex: Female

DRUGS (4)
  1. BETAMETHASONE [Suspect]
     Active Substance: BETAMETHASONE
     Indication: Keratitis
     Dosage: UNK
     Route: 061
  2. VORICONAZOLE [Suspect]
     Active Substance: VORICONAZOLE
     Indication: Keratitis fungal
     Dosage: HOURLY
     Route: 061
  3. FLUOROMETHOLONE [Suspect]
     Active Substance: FLUOROMETHOLONE
     Indication: Keratitis
     Dosage: UNK
     Route: 061
  4. Polyhexamethylene-biguanide [Concomitant]
     Indication: Keratitis
     Dosage: UNK
     Route: 061

REACTIONS (3)
  - Keratitis fungal [Recovered/Resolved]
  - Rebound effect [Unknown]
  - Drug resistance [Unknown]
